FAERS Safety Report 26081017 (Version 1)
Quarter: 2025Q4

REPORT INFORMATION
  Report Type: Spontaneous
  Country: US (occurrence: US)
  Receive Date: 20251124
  Receipt Date: 20251124
  Transmission Date: 20260117
  Serious: No
  Sender: SANOFI AVENTIS
  Company Number: US-SA-2025SA349462

PATIENT
  Age: 64 Year
  Sex: Female

DRUGS (2)
  1. REZUROCK [Suspect]
     Active Substance: BELUMOSUDIL
     Indication: Graft versus host disease
     Dosage: 200 MG, QD
     Route: 048
     Dates: start: 20230201
  2. BACITRACIN [Concomitant]
     Active Substance: BACITRACIN
     Dosage: UNK

REACTIONS (1)
  - Drug hypersensitivity [Unknown]
